FAERS Safety Report 12073505 (Version 1)
Quarter: 2016Q1

REPORT INFORMATION
  Report Type: Report from Study
  Country: US (occurrence: US)
  Receive Date: 20160212
  Receipt Date: 20160212
  Transmission Date: 20160526
  Serious: Yes (Other)
  Sender: FDA-Public Use
  Company Number: US-BIOGEN-2016BI00188395

PATIENT
  Sex: Female

DRUGS (1)
  1. TECFIDERA [Suspect]
     Active Substance: DIMETHYL FUMARATE
     Indication: MULTIPLE SCLEROSIS
     Dosage: STARTING DOSE
     Route: 048
     Dates: start: 201502

REACTIONS (5)
  - Flushing [Unknown]
  - Pyrexia [Unknown]
  - Frequent bowel movements [Unknown]
  - Gastrointestinal infection [Unknown]
  - Spinal fusion surgery [Unknown]
